FAERS Safety Report 15838046 (Version 1)
Quarter: 2019Q1

REPORT INFORMATION
  Report Type: Spontaneous
  Country: US (occurrence: US)
  Receive Date: 20190115
  Receipt Date: 20190115
  Transmission Date: 20190417
  Serious: Yes (Other)
  Sender: FDA-Public Use
  Company Number: None

PATIENT

DRUGS (1)
  1. CREST WHITENING SYSTEMS (HYDROGEN PEROXIDE) [Suspect]
     Active Substance: HYDROGEN PEROXIDE
     Dosage: INTRAORAL

REACTIONS (3)
  - Tooth injury [None]
  - Tooth disorder [None]
  - Tooth fracture [None]
